FAERS Safety Report 18371709 (Version 3)
Quarter: 2021Q2

REPORT INFORMATION
  Report Type: Spontaneous
  Country: US (occurrence: US)
  Receive Date: 20201012
  Receipt Date: 20210531
  Transmission Date: 20210717
  Serious: No
  Sender: FDA-Public Use
  Company Number: US-PFIZER INC-2020389190

PATIENT
  Age: 70 Year
  Sex: Female
  Weight: 49.44 kg

DRUGS (6)
  1. ALPRAZOLAM. [Suspect]
     Active Substance: ALPRAZOLAM
     Indication: ANXIETY
     Dosage: 1MG FIVE TIMES PER DAY (PRESCRIBED)
     Route: 048
  2. ALPRAZOLAM. [Suspect]
     Active Substance: ALPRAZOLAM
     Dosage: 1 MG, 3 TIMES PER DAY
     Route: 048
  3. ALPRAZOLAM. [Suspect]
     Active Substance: ALPRAZOLAM
     Dosage: 1MG AND ANOTHER SPLIT IN HALF
     Route: 048
  4. ATENOLOL. [Concomitant]
     Active Substance: ATENOLOL
     Indication: HYPERTENSION
     Dosage: 25 MG, 1X/DAY
     Route: 048
  5. PREDNISONE. [Concomitant]
     Active Substance: PREDNISONE
     Indication: CHRONIC OBSTRUCTIVE PULMONARY DISEASE
     Dosage: 5 MG, 1X/DAY
     Route: 048
  6. ALPRAZOLAM. [Suspect]
     Active Substance: ALPRAZOLAM
     Indication: PANIC ATTACK
     Dosage: 2 MG, 3X/DAY (PRESCRIBED)
     Route: 048

REACTIONS (14)
  - Intentional product misuse [Unknown]
  - Tongue disorder [Not Recovered/Not Resolved]
  - Lip dry [Unknown]
  - Chapped lips [Unknown]
  - Burning sensation [Unknown]
  - Oral disorder [Not Recovered/Not Resolved]
  - Therapeutic product effect incomplete [Unknown]
  - Prescribed overdose [Unknown]
  - Cheilitis [Unknown]
  - Weight fluctuation [Unknown]
  - Tremor [Unknown]
  - Tongue discomfort [Unknown]
  - Tongue eruption [Unknown]
  - Nervousness [Unknown]
